FAERS Safety Report 11529992 (Version 1)
Quarter: 2015Q3

REPORT INFORMATION
  Report Type: Spontaneous
  Country: CA (occurrence: CA)
  Receive Date: 20150921
  Receipt Date: 20150921
  Transmission Date: 20151125
  Serious: Yes (Other)
  Sender: FDA-Public Use
  Company Number: CA-TEVA-593874ACC

PATIENT
  Age: 82 Year
  Sex: Female
  Weight: 76 kg

DRUGS (5)
  1. TRAZODONE [Concomitant]
     Active Substance: TRAZODONE HYDROCHLORIDE
  2. AMIODARONE [Suspect]
     Active Substance: AMIODARONE
     Indication: ATRIAL FIBRILLATION
     Dosage: 200 MILLIGRAM DAILY;
     Route: 048
  3. COVERSYL [Concomitant]
     Active Substance: PERINDOPRIL
  4. ATENOL [Concomitant]
     Active Substance: ATENOLOL
  5. SPIRONOLACTONE. [Concomitant]
     Active Substance: SPIRONOLACTONE

REACTIONS (3)
  - Product substitution issue [Unknown]
  - Palpitations [Unknown]
  - Tachycardia [Unknown]
